FAERS Safety Report 4421133-X (Version None)
Quarter: 2004Q3

REPORT INFORMATION
  Report Type: 
  Country: None (occurrence: None)
  Receive Date: 20040804
  Receipt Date: 20040722
  Transmission Date: 20050211
  Serious: Yes (Disabling)
  Sender: FDA-Public Use
  Company Number: HQWYE733027FEB03

PATIENT
  Age: 39 Year
  Sex: Female

DRUGS (4)
  1. DIMETAPP [Suspect]
     Dosage: ORAL
     Route: 048
     Dates: start: 20010601
  2. ROBITUSSIN CF (GUAIFENESIN/DEXTROMETHORPHAN/PHENYLPROPANOLAMINE SYRUP) [Suspect]
     Dosage: ORAL
     Route: 048
     Dates: start: 19980113, end: 19980120
  3. TAVIST-D (CLEMASTINE FUMARATE/PHENYLPROPANOLAMINE HYDROCHLORIDE) [Suspect]
     Dosage: ORAL
     Route: 048
  4. TRIAMINIC SRT [Suspect]

REACTIONS (1)
  - CEREBROVASCULAR ACCIDENT [None]
